FAERS Safety Report 19476441 (Version 4)
Quarter: 2021Q3

REPORT INFORMATION
  Report Type: Report from Study
  Country: JP (occurrence: JP)
  Receive Date: 20210630
  Receipt Date: 20210916
  Transmission Date: 20211014
  Serious: Yes (Hospitalization, Other)
  Sender: FDA-Public Use
  Company Number: JP-ASTELLAS-2021JP012417

PATIENT
  Age: 78 Year
  Sex: Male
  Weight: 62 kg

DRUGS (18)
  1. LEUPLIN [Concomitant]
     Active Substance: LEUPROLIDE ACETATE
     Indication: ANTIANDROGEN THERAPY
     Dosage: 22.5 MG, EVERY 6 MONTHS
     Route: 042
     Dates: start: 20171130
  2. LOXONIN [Concomitant]
     Active Substance: LOXOPROFEN SODIUM
     Indication: CLAVICLE FRACTURE
     Dosage: UNK UNK, UNKNOWN FREQ.
     Route: 048
     Dates: start: 20180617
  3. MICARDIS [Concomitant]
     Active Substance: TELMISARTAN
     Indication: HYPERTENSION
     Dosage: UNK UNK, UNKNOWN FREQ.
     Route: 048
     Dates: start: 20191126
  4. ENZALUTAMIDE [Suspect]
     Active Substance: ENZALUTAMIDE
     Dosage: 80 MG/DAY, UNKNOWN FREQ.
     Route: 048
     Dates: start: 20181104
  5. ENZALUTAMIDE [Suspect]
     Active Substance: ENZALUTAMIDE
     Route: 048
     Dates: start: 20190319
  6. KINDAVATE [Concomitant]
     Active Substance: CLOBETASONE BUTYRATE
     Indication: DERMATITIS ALLERGIC
     Dosage: ADEQUATE DOSE, UNKNOWN FREQ.
     Route: 061
     Dates: start: 20121213
  7. DENOTAS [Concomitant]
     Active Substance: CALCIUM CARBONATE\CHOLECALCIFEROL\MAGNESIUM CARBONATE
     Indication: PROPHYLAXIS
     Dosage: UNK UNK, UNKNOWN FREQ.
     Route: 048
     Dates: start: 20171016
  8. ENZALUTAMIDE [Suspect]
     Active Substance: ENZALUTAMIDE
     Dosage: UNK UNK, UNKNOWN FREQ.
     Route: 048
     Dates: start: 20201124
  9. URIEF [Concomitant]
     Active Substance: SILODOSIN
     Indication: BENIGN PROSTATIC HYPERPLASIA
     Dosage: 2 MG/DAY, UNKNOWN FREQ.
     Route: 048
     Dates: start: 20141211
  10. BILASTINE [Concomitant]
     Active Substance: BILASTINE
     Indication: DERMATITIS ALLERGIC
     Dosage: UNK UNK, UNKNOWN FREQ.
     Route: 048
     Dates: start: 20171207
  11. FENAZOL [Concomitant]
     Active Substance: FLUFENAMIC ACID
     Indication: DERMATITIS ALLERGIC
     Dosage: ADEQUATE DOSE, UNKNOWN FREQ.
     Route: 061
     Dates: start: 20121213
  12. SILODOSIN. [Concomitant]
     Active Substance: SILODOSIN
     Indication: BENIGN PROSTATIC HYPERPLASIA
     Dosage: UNK UNK, UNKNOWN FREQ.
     Route: 048
     Dates: start: 201702
  13. PRALIA [Concomitant]
     Active Substance: DENOSUMAB
     Indication: PROPHYLAXIS
     Route: 058
     Dates: start: 20171016
  14. LEUPLIN [Concomitant]
     Active Substance: LEUPROLIDE ACETATE
     Indication: PROSTATE CANCER
  15. ENZALUTAMIDE [Suspect]
     Active Substance: ENZALUTAMIDE
     Indication: HORMONE-DEPENDENT PROSTATE CANCER
     Route: 048
     Dates: start: 20171102, end: 20181016
  16. ENZALUTAMIDE [Suspect]
     Active Substance: ENZALUTAMIDE
     Dosage: 80 MG, ONCE DAILY, IN THE MORNING
     Route: 048
     Dates: end: 20201103
  17. BILANOA [Concomitant]
     Active Substance: BILASTINE
     Indication: DERMATITIS ALLERGIC
     Dosage: 20 MG/DAY, UNKNOWN FREQ.
     Route: 048
     Dates: start: 20171016
  18. REBAMIPIDE [Concomitant]
     Active Substance: REBAMIPIDE
     Indication: CLAVICLE FRACTURE
     Dosage: UNK UNK, UNKNOWN FREQ.
     Route: 048
     Dates: start: 20180617

REACTIONS (8)
  - Lung neoplasm malignant [Recovered/Resolved]
  - Phrenic nerve paralysis [Not Recovered/Not Resolved]
  - Colon adenoma [Recovered/Resolved]
  - Intercostal neuralgia [Not Recovered/Not Resolved]
  - Diverticulum intestinal [Not Recovered/Not Resolved]
  - Electrocardiogram T wave inversion [Not Recovered/Not Resolved]
  - Adenocarcinoma [Recovered/Resolved]
  - Large intestine polyp [Recovered/Resolved]

NARRATIVE: CASE EVENT DATE: 20200730
